FAERS Safety Report 8106624 (Version 4)
Quarter: 2014Q2

REPORT INFORMATION
  Report Type: Spontaneous
  Country: US (occurrence: US)
  Receive Date: 20110825
  Receipt Date: 20140606
  Transmission Date: 20141212
  Serious: Yes (Hospitalization)
  Sender: FDA-Public Use
  Company Number: US-GLAXOSMITHKLINE-A0942045A

PATIENT
  Age: 60 Year
  Sex: Male
  Weight: 88.2 kg

DRUGS (2)
  1. AVANDIA [Suspect]
     Indication: DIABETES MELLITUS
     Dosage: 8MG PER DAY
     Route: 048
     Dates: start: 20010112
  2. AVANDAMET [Suspect]
     Indication: DIABETES MELLITUS
     Route: 048
     Dates: start: 20030211, end: 20080320

REACTIONS (3)
  - Cerebrovascular accident [Not Recovered/Not Resolved]
  - Haemorrhage intracranial [Unknown]
  - Cardiac disorder [Unknown]
